FAERS Safety Report 9224584 (Version 1)
Quarter: 2013Q2

REPORT INFORMATION
  Report Type: Spontaneous
  Country: US (occurrence: None)
  Receive Date: 20130411
  Receipt Date: 20130411
  Transmission Date: 20140414
  Serious: Yes (Hospitalization)
  Sender: FDA-Public Use
  Company Number: None

PATIENT
  Age: 77 Year
  Sex: Female
  Weight: 64.2 kg

DRUGS (16)
  1. COUMADIN [Suspect]
     Indication: ATRIAL FIBRILLATION
     Dosage: 6MG  DAILY  PO?CHRONIC
     Route: 048
  2. HEPARIN [Suspect]
     Indication: ANTICOAGULANT THERAPY
     Dosage: VARIABLE                       IV?RECENT
     Route: 042
  3. MVI [Concomitant]
  4. CA CARB [Concomitant]
  5. ROBITUSSIN AC [Concomitant]
  6. COLCHINCINE [Concomitant]
  7. CARDOZEM-LA [Concomitant]
  8. FERROCITE [Concomitant]
  9. NEURONTIN [Concomitant]
  10. LEVOTHYROXINE [Concomitant]
  11. PREDNISONE [Concomitant]
  12. SENNA [Concomitant]
  13. ALDACTONE [Concomitant]
  14. SPIRIVA [Concomitant]
  15. DEMADEX [Concomitant]
  16. NYSTATIN [Concomitant]

REACTIONS (4)
  - Platelet count decreased [None]
  - Haematocrit decreased [None]
  - Muscle haemorrhage [None]
  - International normalised ratio decreased [None]
